FAERS Safety Report 24031446 (Version 1)
Quarter: 2024Q2

REPORT INFORMATION
  Report Type: Spontaneous
  Country: US (occurrence: US)
  Receive Date: 20240629
  Receipt Date: 20240629
  Transmission Date: 20240716
  Serious: Yes (Hospitalization, Other)
  Sender: FDA-Public Use
  Company Number: US-CIPLA LTD.-2024US05695

PATIENT

DRUGS (28)
  1. BUPROPION [Interacting]
     Active Substance: BUPROPION\BUPROPION HYDROCHLORIDE
     Indication: Post-traumatic stress disorder
     Dosage: UNK
     Route: 065
  2. BUPROPION [Interacting]
     Active Substance: BUPROPION\BUPROPION HYDROCHLORIDE
     Indication: Anxiety disorder
  3. BUPROPION [Interacting]
     Active Substance: BUPROPION\BUPROPION HYDROCHLORIDE
     Indication: Borderline personality disorder
  4. BUPROPION [Interacting]
     Active Substance: BUPROPION\BUPROPION HYDROCHLORIDE
     Indication: Major depression
  5. TOPIRAMATE [Interacting]
     Active Substance: TOPIRAMATE
     Indication: Post-traumatic stress disorder
     Dosage: UNK
     Route: 065
  6. TOPIRAMATE [Interacting]
     Active Substance: TOPIRAMATE
     Indication: Anxiety disorder
  7. TOPIRAMATE [Interacting]
     Active Substance: TOPIRAMATE
     Indication: Borderline personality disorder
  8. TOPIRAMATE [Interacting]
     Active Substance: TOPIRAMATE
     Indication: Major depression
  9. LAMOTRIGINE [Interacting]
     Active Substance: LAMOTRIGINE
     Indication: Borderline personality disorder
     Dosage: UNK
     Route: 065
  10. LAMOTRIGINE [Interacting]
     Active Substance: LAMOTRIGINE
     Indication: Major depression
  11. LAMOTRIGINE [Interacting]
     Active Substance: LAMOTRIGINE
     Indication: Post-traumatic stress disorder
  12. LAMOTRIGINE [Interacting]
     Active Substance: LAMOTRIGINE
     Indication: Anxiety disorder
  13. CHLORPROMAZINE [Interacting]
     Active Substance: CHLORPROMAZINE
     Indication: Major depression
     Dosage: 25 MILLIGRAM, TID (THREE TIMES A DAY)
     Route: 065
  14. CHLORPROMAZINE [Interacting]
     Active Substance: CHLORPROMAZINE
     Indication: Anxiety disorder
  15. CHLORPROMAZINE [Interacting]
     Active Substance: CHLORPROMAZINE
     Indication: Borderline personality disorder
  16. CHLORPROMAZINE [Interacting]
     Active Substance: CHLORPROMAZINE
     Indication: Post-traumatic stress disorder
  17. CLOZAPINE [Interacting]
     Active Substance: CLOZAPINE
     Indication: Post-traumatic stress disorder
     Dosage: 100 MILLIGRAM ONCE A DAY
     Route: 065
  18. CLOZAPINE [Interacting]
     Active Substance: CLOZAPINE
     Indication: Borderline personality disorder
  19. CLOZAPINE [Interacting]
     Active Substance: CLOZAPINE
     Indication: Major depression
  20. CLOZAPINE [Interacting]
     Active Substance: CLOZAPINE
     Indication: Anxiety disorder
  21. CITALOPRAM [Concomitant]
     Active Substance: CITALOPRAM\CITALOPRAM HYDROBROMIDE
     Indication: Major depression
     Dosage: UNK
     Route: 065
  22. CITALOPRAM [Concomitant]
     Active Substance: CITALOPRAM\CITALOPRAM HYDROBROMIDE
     Indication: Anxiety disorder
  23. CITALOPRAM [Concomitant]
     Active Substance: CITALOPRAM\CITALOPRAM HYDROBROMIDE
     Indication: Borderline personality disorder
  24. CITALOPRAM [Concomitant]
     Active Substance: CITALOPRAM\CITALOPRAM HYDROBROMIDE
     Indication: Post-traumatic stress disorder
  25. LITHIUM [Concomitant]
     Active Substance: LITHIUM
     Indication: Borderline personality disorder
     Dosage: UNK
     Route: 065
  26. LITHIUM [Concomitant]
     Active Substance: LITHIUM
     Indication: Post-traumatic stress disorder
  27. LITHIUM [Concomitant]
     Active Substance: LITHIUM
     Indication: Major depression
  28. LITHIUM [Concomitant]
     Active Substance: LITHIUM
     Indication: Anxiety disorder

REACTIONS (5)
  - Drug interaction [Unknown]
  - Neutropenic sepsis [Recovered/Resolved]
  - Thrombocytosis [Recovered/Resolved]
  - Anaemia [Recovered/Resolved]
  - Agranulocytosis [Recovered/Resolved]
